FAERS Safety Report 14029718 (Version 3)
Quarter: 2021Q1

REPORT INFORMATION
  Report Type: Spontaneous
  Country: US (occurrence: US)
  Receive Date: 20170930
  Receipt Date: 20210323
  Transmission Date: 20210419
  Serious: No
  Sender: FDA-Public Use
  Company Number: US-SA-2017SA131314

PATIENT
  Sex: Female

DRUGS (26)
  1. PREDNISONE. [Concomitant]
     Active Substance: PREDNISONE
     Dosage: UNK UNK,UNK
     Route: 065
  2. FLUTICASONE PROPIONATE. [Concomitant]
     Active Substance: FLUTICASONE PROPIONATE
     Dosage: UNK UNK,UNK
     Route: 065
  3. AMOXICILLIN + CLAVULANATE POTASSIUM [AMOXICILLIN TRIHYDRATE;CLAVULANAT [Concomitant]
     Dosage: 20MG
  4. PROPIONATE [Concomitant]
  5. AMANTADINE HYDROCHLORIDE. [Concomitant]
     Active Substance: AMANTADINE HYDROCHLORIDE
     Dosage: UNK UNK,UNK
     Route: 065
  6. CLAVULANATE POTASSIUM [Concomitant]
     Active Substance: CLAVULANATE POTASSIUM
     Dosage: UNK UNK,UNK
     Route: 065
  7. LOSARTAN POTASSIUM. [Concomitant]
     Active Substance: LOSARTAN POTASSIUM
     Dosage: 20MG
  8. PREDNISONE. [Concomitant]
     Active Substance: PREDNISONE
     Dosage: 20MG
  9. SERTRALINE HYDROCHLORIDE. [Concomitant]
     Active Substance: SERTRALINE HYDROCHLORIDE
     Dosage: UNK UNK,UNK
     Route: 065
  10. ZOLOFT [Concomitant]
     Active Substance: SERTRALINE HYDROCHLORIDE
     Dosage: UNK UNK,UNK
     Route: 065
  11. SULFAMETHOXAZOLE [Concomitant]
     Active Substance: SULFAMETHOXAZOLE
     Dosage: UNK UNK,UNK
     Route: 065
  12. PROVIGIL [Concomitant]
     Active Substance: MODAFINIL
     Dosage: UNK UNK,UNK
     Route: 065
  13. MODAFINIL. [Concomitant]
     Active Substance: MODAFINIL
     Dosage: UNK UNK,UNK
     Route: 065
  14. ZOLOFT [Concomitant]
     Active Substance: SERTRALINE HYDROCHLORIDE
  15. PROPRANOLOL [Concomitant]
     Active Substance: PROPRANOLOL HYDROCHLORIDE
     Dosage: 20MG
     Route: 065
  16. AZITHROMYCIN HYDROCHLORIDE [Concomitant]
     Active Substance: AZITHROMYCIN DIHYDROCHLORIDE
     Dosage: UNK UNK,UNK
     Route: 065
  17. AMOXICILLIN. [Concomitant]
     Active Substance: AMOXICILLIN
     Dosage: UNK UNK,UNK
     Route: 065
  18. AZITHROMYCIN HYDROCHLORIDE [Concomitant]
     Active Substance: AZITHROMYCIN DIHYDROCHLORIDE
     Dosage: 20MG
  19. FLUTICASONE PROPIONATE. [Concomitant]
     Active Substance: FLUTICASONE PROPIONATE
     Dosage: 20MG
  20. LYRICA [Concomitant]
     Active Substance: PREGABALIN
     Dosage: UNK UNK,UNK
     Route: 065
  21. LYRICA [Concomitant]
     Active Substance: PREGABALIN
  22. ADENOSINE/MAGNESIUM/MANGANESE/VITAMIN B12 [Concomitant]
  23. VITAMIN B12 [Concomitant]
     Active Substance: CYANOCOBALAMIN
  24. SULFAMETHOXAZOLE AND TRIMETHOPRIM [Concomitant]
     Active Substance: SULFAMETHOXAZOLE\TRIMETHOPRIM
  25. AUBAGIO [Suspect]
     Active Substance: TERIFLUNOMIDE
     Indication: MULTIPLE SCLEROSIS
     Dosage: 14 MG,QD
     Route: 048
     Dates: start: 20150707
  26. PROVISOL [Concomitant]

REACTIONS (3)
  - Diarrhoea [Not Recovered/Not Resolved]
  - Sinusitis [Unknown]
  - Malaise [Unknown]
